FAERS Safety Report 4708306-3 (Version None)
Quarter: 2005Q3

REPORT INFORMATION
  Report Type: 
  Country: None (occurrence: None)
  Receive Date: 20050707
  Receipt Date: 20040816
  Transmission Date: 20060218
  Serious: Yes (Hospitalization, Other)
  Sender: FDA-Public Use
  Company Number: PHNU2004DE02889

PATIENT
  Age: 37 Year
  Sex: Female
  Weight: 63 kg

DRUGS (1)
  1. LAMISIL [Suspect]
     Indication: ONYCHOMYCOSIS
     Dosage: 250 MG, QD
     Route: 048
     Dates: start: 20030420, end: 20030530

REACTIONS (18)
  - ALOPECIA [None]
  - ANTINUCLEAR ANTIBODY POSITIVE [None]
  - CONDITION AGGRAVATED [None]
  - CUTANEOUS LUPUS ERYTHEMATOSUS [None]
  - DNA ANTIBODY POSITIVE [None]
  - ELECTROCARDIOGRAM ABNORMAL [None]
  - ERYTHEMA [None]
  - ERYTHEMA ANNULARE [None]
  - LYMPHADENOPATHY [None]
  - MIXED CONNECTIVE TISSUE DISEASE [None]
  - MONOCYTE COUNT INCREASED [None]
  - NAIL DISORDER [None]
  - NIGHT SWEATS [None]
  - PSORIASIS [None]
  - RED BLOOD CELL SEDIMENTATION RATE INCREASED [None]
  - SKIN DISORDER [None]
  - SKIN HYPERPIGMENTATION [None]
  - TRANSAMINASES INCREASED [None]
